FAERS Safety Report 4650865-3 (Version None)
Quarter: 2005Q2

REPORT INFORMATION
  Report Type: 
  Country: None (occurrence: None)
  Receive Date: 20050429
  Receipt Date: 20050419
  Transmission Date: 20051028
  Serious: Yes (Other)
  Sender: FDA-Public Use
  Company Number: 2005063176

PATIENT
  Age: 73 Year
  Sex: Male

DRUGS (2)
  1. ZOLOFT [Suspect]
     Indication: ILL-DEFINED DISORDER
     Dosage: 50 MG (50 MG, 1 IN 1 D), ORAL
     Route: 048
     Dates: start: 20041015
  2. ASPIRIN [Concomitant]

REACTIONS (4)
  - ASTHENIA [None]
  - DEMENTIA ALZHEIMER'S TYPE [None]
  - FEELING COLD [None]
  - TRANSIENT ISCHAEMIC ATTACK [None]
